FAERS Safety Report 16833536 (Version 1)
Quarter: 2019Q3

REPORT INFORMATION
  Report Type: Spontaneous
  Country: US (occurrence: US)
  Receive Date: 20190920
  Receipt Date: 20190920
  Transmission Date: 20191005
  Serious: No
  Sender: FDA-Public Use
  Company Number: US-TEVA-2019-US-1111335

PATIENT
  Age: 36 Year
  Sex: Male

DRUGS (2)
  1. COPAXONE [Suspect]
     Active Substance: GLATIRAMER ACETATE
     Indication: MULTIPLE SCLEROSIS
     Dosage: FORM STRENGTH:UNKNOWN
     Route: 065
     Dates: end: 201810
  2. KEPPRA [Suspect]
     Active Substance: LEVETIRACETAM
     Indication: MULTIPLE SCLEROSIS
     Route: 065

REACTIONS (1)
  - Musculoskeletal pain [Unknown]
